FAERS Safety Report 4469253-8 (Version None)
Quarter: 2004Q4

REPORT INFORMATION
  Report Type: 
  Country: None (occurrence: None)
  Receive Date: 20041005
  Receipt Date: 20041005
  Transmission Date: 20050328
  Serious: Yes (Hospitalization)
  Sender: FDA-Public Use
  Company Number: None

PATIENT
  Age: 40 Year
  Sex: Male
  Weight: 81 kg

DRUGS (3)
  1. LAMOTRIGINE [Suspect]
     Indication: CONVULSION
     Dosage: 25 MG BID ORAL
     Route: 048
     Dates: start: 20000101, end: 20040923
  2. LITHIUM [Concomitant]
  3. OLANZEPINE [Concomitant]

REACTIONS (1)
  - STAPHYLOCOCCAL SCALDED SKIN SYNDROME [None]
